FAERS Safety Report 5330035-6 (Version None)
Quarter: 2007Q2

REPORT INFORMATION
  Report Type: 
  Country: None (occurrence: None)
  Receive Date: 20070521
  Receipt Date: 20070516
  Transmission Date: 20071010
  Serious: Yes (Life-Threatening, Hospitalization)
  Sender: FDA-Public Use
  Company Number: JP-ASTRAZENECA-2007AP02829

PATIENT
  Age: 28964 Day
  Sex: Male
  Weight: 48 kg

DRUGS (15)
  1. SEROQUEL [Suspect]
     Indication: DELIRIUM
     Route: 048
     Dates: start: 20070206, end: 20070217
  2. PROGRAF [Interacting]
     Indication: MYASTHENIA GRAVIS
     Route: 048
     Dates: start: 20070121, end: 20070217
  3. PROGRAF [Interacting]
     Indication: RHEUMATOID ARTHRITIS
     Route: 048
     Dates: start: 20070121, end: 20070217
  4. PROGRAF [Interacting]
     Route: 048
     Dates: start: 20070307
  5. PROGRAF [Interacting]
     Route: 048
     Dates: start: 20070307
  6. ERYTHROCIN [Interacting]
     Indication: BRONCHITIS CHRONIC
     Route: 048
     Dates: start: 20070116
  7. PREDONINE [Concomitant]
     Dates: start: 20060509
  8. SYMMETREL [Concomitant]
     Dates: start: 20061128, end: 20070216
  9. MOBIC [Concomitant]
     Dates: start: 20070206, end: 20070223
  10. MUCOSOLVAN [Concomitant]
     Dates: start: 20051018
  11. ACINON [Concomitant]
     Dates: end: 20070216
  12. MYTELASE [Concomitant]
  13. BENET [Concomitant]
  14. RACOL [Concomitant]
     Indication: PARENTERAL NUTRITION
     Route: 048
     Dates: start: 20060317
  15. SWORD [Concomitant]
     Dates: start: 20070206, end: 20070210

REACTIONS (9)
  - DELIRIUM [None]
  - DEPRESSED LEVEL OF CONSCIOUSNESS [None]
  - DRUG INTERACTION [None]
  - GASTROINTESTINAL FISTULA [None]
  - HYPERCAPNIA [None]
  - HYPERGLYCAEMIA [None]
  - MYOCLONUS [None]
  - PNEUMONIA [None]
  - RENAL IMPAIRMENT [None]
